FAERS Safety Report 4766532-1 (Version None)
Quarter: 2005Q3

REPORT INFORMATION
  Report Type: 
  Country: None (occurrence: None)
  Receive Date: 20050909
  Receipt Date: 20050830
  Transmission Date: 20060218
  Serious: Yes (Other)
  Sender: FDA-Public Use
  Company Number: 2005US001216

PATIENT
  Age: 65 Year
  Sex: Female

DRUGS (12)
  1. AMBISOME [Suspect]
     Indication: SUBDIAPHRAGMATIC ABSCESS
     Dosage: 200.00 MG, TOTAL DOSE, IV NOS
     Route: 042
     Dates: start: 20050602, end: 20050602
  2. PROTIUM (PANTOPRAZOLE SODIUM) [Concomitant]
  3. TENOX (TEMAZEPAM) [Concomitant]
  4. TAZOCIN (PIPERACILLIN SODIUM, TAZOBACTAM SODIUM) [Concomitant]
  5. COMBIVENT [Concomitant]
  6. PULMICORT [Concomitant]
  7. INNOHEP [Concomitant]
  8. AMLODIPINE BESYLATE [Concomitant]
  9. LEXOTAN (BROMAZEPAM) [Concomitant]
  10. ZYDOL (TRAMADOL HYDROCHLORIDE) [Concomitant]
  11. CYCLIMORPH (MORPHINE TARTRATE, CYCLIZINE TARTRATE) [Concomitant]
  12. CANDSARTAN CILEXETIL W/HYDROCHLOROTHIAZIDE (CANDESARTAN CILEXTIN) [Concomitant]

REACTIONS (2)
  - DYSPNOEA [None]
  - SYNCOPE [None]
